FAERS Safety Report 8297450-2 (Version None)
Quarter: 2012Q2

REPORT INFORMATION
  Report Type: 
  Country: None (occurrence: None)
  Receive Date: 20120419
  Receipt Date: 20120405
  Transmission Date: 20120825
  Serious: Yes (Life-Threatening, Hospitalization)
  Sender: FDA-Public Use
  Company Number: DE-RANBAXY-2012RR-55472

PATIENT
  Age: 83 Year
  Sex: Female

DRUGS (1)
  1. METFORMIN HCL [Suspect]
     Indication: DIABETES MELLITUS
     Dosage: 850 MG, BID
     Route: 048

REACTIONS (5)
  - SOMNOLENCE [None]
  - VOMITING [None]
  - ACUTE ABDOMEN [None]
  - LACTIC ACIDOSIS [None]
  - ABDOMINAL PAIN [None]
